FAERS Safety Report 6015507-3 (Version None)
Quarter: 2008Q4

REPORT INFORMATION
  Report Type: 
  Country: None (occurrence: None)
  Receive Date: 20081219
  Receipt Date: 20081219
  Transmission Date: 20090506
  Serious: Yes (Hospitalization)
  Sender: FDA-Public Use
  Company Number: None

PATIENT
  Age: 54 Year
  Sex: Male
  Weight: 91.63 kg

DRUGS (2)
  1. ENOXAPARIN SODIUM [Suspect]
     Dosage: 75 MG BID SQ
     Route: 058
     Dates: start: 20080922, end: 20080930
  2. WARFARIN SODIUM [Suspect]
     Dates: start: 20070105

REACTIONS (2)
  - HAEMARTHROSIS [None]
  - HAEMORRHAGE [None]
